FAERS Safety Report 22085926 (Version 2)
Quarter: 2023Q4

REPORT INFORMATION
  Report Type: Spontaneous
  Country: US (occurrence: US)
  Receive Date: 20230310
  Receipt Date: 20231108
  Transmission Date: 20240109
  Serious: Yes (Other)
  Sender: FDA-Public Use
  Company Number: US-PFIZER INC-PV202300046349

PATIENT
  Age: 82 Year
  Sex: Female

DRUGS (1)
  1. XELJANZ XR [Suspect]
     Active Substance: TOFACITINIB CITRATE
     Dosage: UNK

REACTIONS (5)
  - Gallbladder operation [Unknown]
  - Skin cancer [Unknown]
  - Dementia Alzheimer^s type [Not Recovered/Not Resolved]
  - Atrial fibrillation [Unknown]
  - Aggression [Unknown]
